FAERS Safety Report 6134943-8 (Version None)
Quarter: 2009Q1

REPORT INFORMATION
  Report Type: 
  Country: None (occurrence: None)
  Receive Date: 20090325
  Receipt Date: 20090311
  Transmission Date: 20090719
  Serious: Yes (Death)
  Sender: FDA-Public Use
  Company Number: 000551

PATIENT
  Sex: Female

DRUGS (10)
  1. VIMPAT [Suspect]
     Dates: start: 20081216
  2. LEVETIRACETAM [Concomitant]
  3. OXCARBAZEPINE [Concomitant]
  4. ZONISAMIDE [Concomitant]
  5. VALPROATE SODIUM [Concomitant]
  6. LAMOTRIGINE [Concomitant]
  7. VIGABATRIN [Concomitant]
  8. PREGABALIN [Concomitant]
  9. LEVOTHYROXINE SODIUM [Concomitant]
  10. CITALOPRAM HYDROBROMIDE [Concomitant]

REACTIONS (1)
  - SUDDEN UNEXPLAINED DEATH IN EPILEPSY [None]
